FAERS Safety Report 14363860 (Version 9)
Quarter: 2018Q1

REPORT INFORMATION
  Report Type: Spontaneous
  Country: PH (occurrence: PH)
  Receive Date: 20180108
  Receipt Date: 20180321
  Transmission Date: 20180509
  Serious: Yes (Hospitalization, Other)
  Sender: FDA-Public Use
  Company Number: PH-PFIZER INC-2018002172

PATIENT
  Age: 40 Year
  Sex: Female

DRUGS (5)
  1. LYRICA [Suspect]
     Active Substance: PREGABALIN
     Indication: NEURALGIA
     Dosage: 75 MG, 1X/DAY
     Route: 048
     Dates: start: 20170520, end: 2017
  2. LYRICA [Suspect]
     Active Substance: PREGABALIN
     Indication: CUBITAL TUNNEL SYNDROME
     Dosage: 75 MG, 1X/DAY
     Route: 048
     Dates: start: 20170722
  3. LYRICA [Suspect]
     Active Substance: PREGABALIN
     Dosage: 75 MG, 3X/DAY  (AM,/MIDDAY/PM)
     Route: 048
     Dates: start: 20170917, end: 20170919
  4. KELTICAN /00619201/ [Concomitant]
     Indication: VITAMIN SUPPLEMENTATION
     Dosage: UNK, 1X/DAY
     Route: 048
     Dates: start: 20170722
  5. LYRICA [Suspect]
     Active Substance: PREGABALIN
     Indication: NEUROPATHY PERIPHERAL
     Dosage: 75 MG, 2X/DAY (AM /PM)
     Route: 048
     Dates: start: 20170912, end: 20170916

REACTIONS (55)
  - Lymphadenopathy mediastinal [Unknown]
  - Hilar lymphadenopathy [Unknown]
  - Gastrooesophageal reflux disease [Not Recovered/Not Resolved]
  - Fibrosis [Not Recovered/Not Resolved]
  - Lip swelling [Recovered/Resolved]
  - Pruritus generalised [Not Recovered/Not Resolved]
  - Rash macular [Not Recovered/Not Resolved]
  - Retinal haemorrhage [Unknown]
  - Somnolence [Recovered/Resolved]
  - Pruritus [Not Recovered/Not Resolved]
  - Optic nerve disorder [Recovered/Resolved]
  - Red blood cell sedimentation rate abnormal [Unknown]
  - Mean cell haemoglobin decreased [Unknown]
  - Papilloedema [Unknown]
  - Lacrimation increased [Not Recovered/Not Resolved]
  - Productive cough [Not Recovered/Not Resolved]
  - Rash erythematous [Not Recovered/Not Resolved]
  - Eczema [Not Recovered/Not Resolved]
  - Vomiting [Recovered/Resolved]
  - Balance disorder [Recovered/Resolved]
  - Dry skin [Not Recovered/Not Resolved]
  - Drug hypersensitivity [Unknown]
  - Mass [Unknown]
  - Scar [Not Recovered/Not Resolved]
  - Weight decreased [Not Recovered/Not Resolved]
  - Psychiatric symptom [Not Recovered/Not Resolved]
  - Rash pruritic [Not Recovered/Not Resolved]
  - Blood 25-hydroxycholecalciferol decreased [Unknown]
  - Red blood cell count increased [Unknown]
  - Stomatitis [Recovered/Resolved]
  - Optic nerve sheath haemorrhage [Recovered/Resolved]
  - Liver disorder [Unknown]
  - Dyspnoea [Not Recovered/Not Resolved]
  - C-reactive protein abnormal [Unknown]
  - Eye irritation [Unknown]
  - Rash maculo-papular [Not Recovered/Not Resolved]
  - Immune system disorder [Unknown]
  - Eye pruritus [Recovered/Resolved]
  - Acne [Not Recovered/Not Resolved]
  - Chapped lips [Not Recovered/Not Resolved]
  - Vision blurred [Recovered/Resolved]
  - C-reactive protein increased [Unknown]
  - Mean cell volume decreased [Unknown]
  - Laryngeal inflammation [Not Recovered/Not Resolved]
  - Dysphonia [Not Recovered/Not Resolved]
  - Inflammation [Unknown]
  - Heart rate increased [Recovered/Resolved]
  - Cough [Not Recovered/Not Resolved]
  - Asthma [Not Recovered/Not Resolved]
  - Wheezing [Not Recovered/Not Resolved]
  - Stress [Not Recovered/Not Resolved]
  - Dizziness [Recovered/Resolved]
  - Hepatic enzyme increased [Unknown]
  - Red blood cell sedimentation rate increased [Unknown]
  - Photophobia [Unknown]

NARRATIVE: CASE EVENT DATE: 2017
